FAERS Safety Report 5723445-6 (Version None)
Quarter: 2008Q2

REPORT INFORMATION
  Report Type: 
  Country: None (occurrence: None)
  Receive Date: 20080425
  Receipt Date: 20080409
  Transmission Date: 20081010
  Serious: Yes (Other)
  Sender: FDA-Public Use
  Company Number: 2008S1006379

PATIENT
  Age: 60 Year
  Sex: Male

DRUGS (1)
  1. AZATHIOPRINE [Suspect]
     Indication: DERMATITIS CONTACT
     Dosage: 50 MG; DAILY; 100 MG;  DAILY; 50 MG X1

REACTIONS (7)
  - ABDOMINAL PAIN [None]
  - ANAPHYLACTIC SHOCK [None]
  - DIARRHOEA [None]
  - MALAISE [None]
  - NAUSEA [None]
  - PYREXIA [None]
  - VOMITING [None]
